FAERS Safety Report 6906477-1 (Version None)
Quarter: 2010Q3

REPORT INFORMATION
  Report Type: 
  Country: None (occurrence: None)
  Receive Date: 20100804
  Receipt Date: 20100730
  Transmission Date: 20110219
  Serious: Yes (Other)
  Sender: FDA-Public Use
  Company Number: HQWYE714231AUG04

PATIENT
  Sex: Female

DRUGS (5)
  1. PREMPRO [Suspect]
  2. CYCRIN [Suspect]
  3. MEDROXYPROGESTERONE ACETATE [Suspect]
  4. PREMARIN [Suspect]
  5. MEDROXYPROGESTERONE ACETATE [Suspect]

REACTIONS (2)
  - BREAST CANCER METASTATIC [None]
  - ENDOMETRIAL CANCER [None]
